FAERS Safety Report 8875020 (Version 1)
Quarter: 2012Q4

REPORT INFORMATION
  Report Type: 
  Country: US (occurrence: US)
  Receive Date: 20121026
  Receipt Date: 20121026
  Transmission Date: 20130627
  Serious: No
  Sender: FDA-Public Use
  Company Number: US-AMGEN-USASP2012045732

PATIENT
  Age: 51 Year
  Sex: Female

DRUGS (1)
  1. ENBREL [Suspect]
     Indication: SCLERODERMA
     Dosage: 50 mg, qwk
     Route: 058
     Dates: start: 20120128

REACTIONS (2)
  - Night sweats [Unknown]
  - Menopause [Unknown]
